FAERS Safety Report 5588849-3 (Version None)
Quarter: 2007Q4

REPORT INFORMATION
  Report Type: 
  Country: None (occurrence: None)
  Receive Date: 20071211
  Receipt Date: 20070927
  Transmission Date: 20080405
  Serious: No
  Sender: FDA-Public Use
  Company Number: 002#2#2007-00345

PATIENT
  Age: 86 Year
  Sex: Male

DRUGS (5)
  1. NEUPRO-PATCH-DOSE- (ROTIGOTINE) [Suspect]
     Indication: PARKINSON'S DISEASE
     Dosage: 2MG/24H,1 IN 1 D,TRANSDERMAL ; 4MG/24H,1 IN 1 D,TRANSDERMAL
     Route: 062
     Dates: start: 20071001, end: 20071001
  2. NEUPRO-PATCH-DOSE- (ROTIGOTINE) [Suspect]
     Indication: PARKINSON'S DISEASE
     Dosage: 2MG/24H,1 IN 1 D,TRANSDERMAL ; 4MG/24H,1 IN 1 D,TRANSDERMAL
     Route: 062
     Dates: start: 20070101
  3. EXELON [Concomitant]
  4. CARBIDOPA [Concomitant]
  5. LEVODOPA [Concomitant]

REACTIONS (1)
  - BLOOD GLUCOSE INCREASED [None]
